FAERS Safety Report 9354188 (Version 2)
Quarter: 2013Q2

REPORT INFORMATION
  Report Type: Spontaneous
  Country: GB (occurrence: None)
  Receive Date: 20130613
  Receipt Date: 20130618
  Transmission Date: 20140414
  Serious: Yes (Other)
  Sender: FDA-Public Use
  Company Number: AUR-APL-2013-04793

PATIENT
  Age: 20 Year
  Sex: Male
  Weight: 60 kg

DRUGS (4)
  1. CITALOPRAM(CITALOPRAM) [Suspect]
     Indication: DEPRESSION
     Route: 048
     Dates: start: 20130515, end: 20130516
  2. BACLOFEN [Concomitant]
  3. NIFEDIPINE [Concomitant]
  4. OMEPRAZOLE (OMEPRAZOLE) [Concomitant]

REACTIONS (13)
  - Feeling jittery [None]
  - Muscle contractions involuntary [None]
  - Muscle spasms [None]
  - Skin disorder [None]
  - Musculoskeletal stiffness [None]
  - Local swelling [None]
  - Joint swelling [None]
  - Insomnia [None]
  - Dry mouth [None]
  - Musculoskeletal stiffness [None]
  - Joint swelling [None]
  - Joint swelling [None]
  - Chills [None]
